FAERS Safety Report 13701687 (Version 7)
Quarter: 2018Q4

REPORT INFORMATION
  Report Type: Spontaneous
  Country: US (occurrence: US)
  Receive Date: 20170629
  Receipt Date: 20181106
  Transmission Date: 20190204
  Serious: No
  Sender: FDA-Public Use
  Company Number: US-PFIZER INC-2017265431

PATIENT
  Age: 53 Year
  Sex: Female
  Weight: 109 kg

DRUGS (5)
  1. SUTENT [Suspect]
     Active Substance: SUNITINIB MALATE
     Dosage: 37.5 MG, CYCLIC (DAYS 1 TO 21 EVERY 28 DAYS)
     Route: 048
  2. SUTENT [Suspect]
     Active Substance: SUNITINIB MALATE
     Dosage: 37.5 MG, CYCLIC (DAYS 1 TO 21 EVERY 28 DAYS)
     Route: 048
     Dates: end: 20181009
  3. SUTENT [Suspect]
     Active Substance: SUNITINIB MALATE
     Dosage: 37.5 MG, CYCLIC (DAYS 1 TO 21 EVERY 28 DAYS)
     Route: 048
     Dates: start: 20170616
  4. SUTENT [Suspect]
     Active Substance: SUNITINIB MALATE
     Indication: THYROID CANCER METASTATIC
     Dosage: 37.5 MG, CYCLIC (DAYS 1 TO 21, EVERY 28 DAYS)
     Route: 048
     Dates: start: 2013, end: 201411
  5. SUTENT [Suspect]
     Active Substance: SUNITINIB MALATE
     Dosage: 37.5 MG, CYCLIC (DAYS 1 TO 21 EVERY 42 DAYS)
     Route: 048
     Dates: end: 20180910

REACTIONS (13)
  - Abscess [Unknown]
  - Thyroid function test abnormal [Unknown]
  - Weight decreased [Unknown]
  - Back pain [Unknown]
  - Impaired healing [Unknown]
  - Furuncle [Unknown]
  - Muscle spasms [Unknown]
  - Product use in unapproved indication [Unknown]
  - Fatigue [Unknown]
  - Neoplasm progression [Unknown]
  - Hypersomnia [Unknown]
  - Limb injury [Recovered/Resolved]
  - Hypoaesthesia [Unknown]

NARRATIVE: CASE EVENT DATE: 2013
